FAERS Safety Report 8138801-9 (Version None)
Quarter: 2012Q1

REPORT INFORMATION
  Report Type: 
  Country: None (occurrence: None)
  Receive Date: 20120215
  Receipt Date: 20120210
  Transmission Date: 20120608
  Serious: No
  Sender: FDA-Public Use
  Company Number: US-BAYER-2012-015025

PATIENT
  Sex: Female
  Weight: 61 kg

DRUGS (5)
  1. ALEVE (CAPLET) [Suspect]
     Indication: TONSILLITIS
     Dosage: 3 DF, UNK
     Dates: start: 20090201
  2. MULTI-VITAMIN [Concomitant]
  3. NAPROXEN (ALEVE) [Suspect]
     Indication: DYSMENORRHOEA
  4. NAPROXEN (ALEVE) [Suspect]
     Indication: TONSILLITIS
     Dosage: 3 DF, UNK
     Route: 048
     Dates: start: 20090201
  5. ALEVE (CAPLET) [Suspect]
     Indication: DYSMENORRHOEA

REACTIONS (1)
  - DYSMENORRHOEA [None]
